FAERS Safety Report 11591254 (Version 1)
Quarter: 2015Q4

REPORT INFORMATION
  Report Type: Spontaneous
  Country: FR (occurrence: FR)
  Receive Date: 20151004
  Receipt Date: 20151004
  Transmission Date: 20160304
  Serious: Yes (Hospitalization)
  Sender: FDA-Public Use
  Company Number: FR-B. BRAUN MEDICAL INC.-1042540

PATIENT
  Age: 30 Year
  Sex: Female

DRUGS (4)
  1. CEFTRIAXONE. [Concomitant]
     Active Substance: CEFTRIAXONE
     Dates: start: 20150827, end: 20150831
  2. CIPROFLOXACIN. [Concomitant]
     Active Substance: CIPROFLOXACIN
     Dates: start: 20150824, end: 20150826
  3. METRONIDAZOLE. [Suspect]
     Active Substance: METRONIDAZOLE
     Route: 042
     Dates: start: 20150825, end: 20150901
  4. GENTAMICIN. [Concomitant]
     Active Substance: GENTAMICIN
     Dates: start: 20150827, end: 20150831

REACTIONS (4)
  - Diarrhoea haemorrhagic [Recovering/Resolving]
  - Pyrexia [Recovering/Resolving]
  - Stevens-Johnson syndrome [Recovering/Resolving]
  - Weight decreased [Unknown]
